FAERS Safety Report 14101835 (Version 1)
Quarter: 2017Q4

REPORT INFORMATION
  Report Type: Spontaneous
  Country: US (occurrence: US)
  Receive Date: 20171018
  Receipt Date: 20171018
  Transmission Date: 20180321
  Serious: No
  Sender: FDA-Public Use
  Company Number: US-ADAREPHARM-2016-US-000049

PATIENT
  Sex: Male

DRUGS (1)
  1. KCL [Suspect]
     Active Substance: POTASSIUM CHLORIDE
     Route: 048

REACTIONS (2)
  - Foreign body in respiratory tract [Recovered/Resolved]
  - Choking [Recovered/Resolved]
